FAERS Safety Report 5498671-4 (Version None)
Quarter: 2007Q4

REPORT INFORMATION
  Report Type: 
  Country: None (occurrence: None)
  Receive Date: 20071024
  Receipt Date: 20071024
  Transmission Date: 20080405
  Serious: Yes (Hospitalization)
  Sender: FDA-Public Use
  Company Number: None

PATIENT
  Age: 77 Year
  Sex: Female
  Weight: 70 kg

DRUGS (1)
  1. RITUXAN [Suspect]
     Indication: NON-HODGKIN'S LYMPHOMA
     Dates: start: 20010101, end: 20070101

REACTIONS (10)
  - APHASIA [None]
  - CEREBROVASCULAR ACCIDENT [None]
  - CONVULSION [None]
  - DISEASE PROGRESSION [None]
  - GRAND MAL CONVULSION [None]
  - HEMIPARESIS [None]
  - JC VIRUS INFECTION [None]
  - LOSS OF CONSCIOUSNESS [None]
  - NERVOUS SYSTEM DISORDER [None]
  - PROGRESSIVE MULTIFOCAL LEUKOENCEPHALOPATHY [None]
